FAERS Safety Report 5960968-9 (Version None)
Quarter: 2008Q4

REPORT INFORMATION
  Report Type: 
  Country: None (occurrence: None)
  Receive Date: 20081119
  Receipt Date: 20081110
  Transmission Date: 20090506
  Serious: Yes (Other)
  Sender: FDA-Public Use
  Company Number: US025004

PATIENT
  Age: 62 Year
  Sex: Female
  Weight: 58.514 kg

DRUGS (12)
  1. PROVIGIL [Suspect]
     Indication: ASTHENIA
     Dosage: 200 MG QD ORAL
     Route: 048
     Dates: start: 20081106, end: 20081109
  2. PROVIGIL [Suspect]
     Indication: SOMNOLENCE
     Dosage: 200 MG QD ORAL
     Route: 048
     Dates: start: 20081106, end: 20081109
  3. CELEBREX [Concomitant]
  4. PROMETRIUM [Concomitant]
  5. ESTRATEST H.S. [Concomitant]
  6. ASCORBIC ACID [Concomitant]
  7. VITAMIN A [Concomitant]
  8. VITAMIN E [Concomitant]
  9. CALCIUM [Concomitant]
  10. FISH OIL [Concomitant]
  11. WELLBUTRIN XL [Concomitant]
  12. MULTI-VITAMIN [Concomitant]

REACTIONS (3)
  - ALCOHOL USE [None]
  - RASH MORBILLIFORM [None]
  - RASH PRURITIC [None]
